FAERS Safety Report 4478472-6 (Version None)
Quarter: 2004Q4

REPORT INFORMATION
  Report Type: 
  Country: None (occurrence: None)
  Receive Date: 20041018
  Receipt Date: 20041018
  Transmission Date: 20050328
  Serious: Yes (Death)
  Sender: FDA-Public Use
  Company Number: None

PATIENT
  Age: 16 Year
  Sex: Male
  Weight: 81.6475 kg

DRUGS (1)
  1. PAXIL [Suspect]
     Dosage: 80 MILLIGRAM ONCE DAILY ORAL
     Route: 048
     Dates: start: 19980112, end: 20000520

REACTIONS (9)
  - AGGRESSION [None]
  - ALCOHOLISM [None]
  - ANGER [None]
  - EMOTIONAL DISORDER [None]
  - GUN SHOT WOUND [None]
  - INSOMNIA [None]
  - INTENTIONAL OVERDOSE [None]
  - SOMNOLENCE [None]
  - SUICIDE ATTEMPT [None]
